FAERS Safety Report 18963433 (Version 1)
Quarter: 2021Q1

REPORT INFORMATION
  Report Type: Spontaneous
  Country: US (occurrence: US)
  Receive Date: 20210303
  Receipt Date: 20210303
  Transmission Date: 20210420
  Serious: Yes (Other)
  Sender: FDA-Public Use
  Company Number: US-PFIZER INC-2020261051

PATIENT
  Age: 73 Year
  Sex: Female
  Weight: 61.23 kg

DRUGS (1)
  1. PREMARIN [Suspect]
     Active Substance: ESTROGENS, CONJUGATED
     Indication: HYSTERECTOMY
     Dosage: 0.3 MG, 1X/DAY
     Route: 048
     Dates: end: 202011

REACTIONS (8)
  - Insomnia [Unknown]
  - Urinary tract infection [Recovering/Resolving]
  - Body height decreased [Unknown]
  - Hyperhidrosis [Recovering/Resolving]
  - Breast cancer [Unknown]
  - Haemorrhage [Unknown]
  - Mood swings [Recovering/Resolving]
  - Pruritus [Unknown]
